FAERS Safety Report 10456256 (Version 1)
Quarter: 2014Q3

REPORT INFORMATION
  Report Type: Spontaneous
  Country: US (occurrence: US)
  Receive Date: 20140916
  Receipt Date: 20140916
  Transmission Date: 20150326
  Serious: Yes (Other)
  Sender: FDA-Public Use
  Company Number: US-ABBVIE-14P-163-1282376-00

PATIENT
  Sex: Male

DRUGS (3)
  1. DEPO-TESTOSTERONE [Suspect]
     Active Substance: TESTOSTERONE CYPIONATE
     Indication: BLOOD TESTOSTERONE DECREASED
     Dates: start: 1994, end: 2012
  2. ANDRODERM [Suspect]
     Active Substance: TESTOSTERONE
     Indication: BLOOD TESTOSTERONE DECREASED
     Dates: start: 2004, end: 2012
  3. ANDROGEL [Suspect]
     Active Substance: TESTOSTERONE
     Indication: BLOOD TESTOSTERONE DECREASED
     Dates: start: 2000, end: 2012

REACTIONS (7)
  - Emotional distress [Unknown]
  - Injury [Unknown]
  - Emotional disorder [Unknown]
  - Loss of employment [Unknown]
  - Mental disorder [Unknown]
  - Myocardial infarction [Unknown]
  - Impaired work ability [Unknown]

NARRATIVE: CASE EVENT DATE: 20121017
